FAERS Safety Report 6252826-X (Version None)
Quarter: 2009Q3

REPORT INFORMATION
  Report Type: 
  Country: None (occurrence: None)
  Receive Date: 20090701
  Receipt Date: 20090623
  Transmission Date: 20100115
  Serious: Yes (Other)
  Sender: FDA-Public Use
  Company Number: US-ELI_LILLY_AND_COMPANY-US200906006892

PATIENT
  Sex: Male
  Weight: 126.98 kg

DRUGS (7)
  1. BYETTA [Suspect]
     Indication: TYPE 2 DIABETES MELLITUS
     Dosage: 5 UG, 2/D
     Route: 058
     Dates: start: 20080701, end: 20080801
  2. BYETTA [Suspect]
     Dosage: 10 UG, 2/D
     Route: 058
     Dates: start: 20080801
  3. GLIMEPIRIDE [Concomitant]
     Indication: TYPE 2 DIABETES MELLITUS
  4. LANTUS [Concomitant]
     Indication: TYPE 2 DIABETES MELLITUS
     Dosage: 12 U, EACH EVENING
  5. TRICOR [Concomitant]
     Indication: BLOOD TRIGLYCERIDES INCREASED
  6. ALLOPURINOL [Concomitant]
     Indication: GOUT
  7. LISINOPRIL [Concomitant]

REACTIONS (3)
  - OFF LABEL USE [None]
  - PROSTATE CANCER STAGE I [None]
  - PROSTATIC SPECIFIC ANTIGEN INCREASED [None]
